FAERS Safety Report 21328554 (Version 1)
Quarter: 2022Q3

REPORT INFORMATION
  Report Type: Spontaneous
  Country: JP (occurrence: JP)
  Receive Date: 20220913
  Receipt Date: 20220913
  Transmission Date: 20221027
  Serious: Yes (Other)
  Sender: FDA-Public Use
  Company Number: JP-MSD-2209JPN001493J

PATIENT
  Age: 9 Decade
  Sex: Male

DRUGS (2)
  1. KEYTRUDA [Suspect]
     Active Substance: PEMBROLIZUMAB
     Indication: Renal cell carcinoma
     Dosage: UNK
     Route: 065
     Dates: start: 20220818, end: 20220818
  2. LENVATINIB MESYLATE [Suspect]
     Active Substance: LENVATINIB MESYLATE
     Indication: Renal cell carcinoma
     Dosage: 20 MILLIGRAM, QD
     Route: 048
     Dates: start: 20220818, end: 20220907

REACTIONS (4)
  - Thrombocytopenia [Unknown]
  - Adrenal insufficiency [Unknown]
  - Blood thyroid stimulating hormone decreased [Unknown]
  - Malaise [Unknown]

NARRATIVE: CASE EVENT DATE: 20220101
